FAERS Safety Report 5728336-2 (Version None)
Quarter: 2008Q2

REPORT INFORMATION
  Report Type: 
  Country: None (occurrence: None)
  Receive Date: 20080506
  Receipt Date: 20080428
  Transmission Date: 20081010
  Serious: Yes (Other)
  Sender: FDA-Public Use
  Company Number: PHHY2008BR06877

PATIENT
  Sex: Male
  Weight: 25 kg

DRUGS (3)
  1. RITALIN [Suspect]
     Indication: PSYCHOMOTOR HYPERACTIVITY
     Dosage: 2 DF, BID
  2. RITALIN [Suspect]
     Dosage: 3 DF, UNK
  3. RISPERIDONE [Concomitant]
     Indication: CONDUCT DISORDER
     Dosage: 3 DF, UNK

REACTIONS (2)
  - ABNORMAL BEHAVIOUR [None]
  - SUICIDE ATTEMPT [None]
